FAERS Safety Report 17257443 (Version 1)
Quarter: 2020Q1

REPORT INFORMATION
  Report Type: Spontaneous
  Country: DE (occurrence: DE)
  Receive Date: 20200110
  Receipt Date: 20200110
  Transmission Date: 20200409
  Serious: Yes (Death, Other)
  Sender: FDA-Public Use
  Company Number: NVSC2019DE035649

PATIENT
  Age: 33 Month
  Sex: Male
  Weight: 10.3 kg

DRUGS (13)
  1. METHYLPREDNISOLONE. [Concomitant]
     Active Substance: METHYLPREDNISOLONE
     Dosage: 5MG/KG BW
     Route: 065
     Dates: start: 2007
  2. MELPHALAN. [Suspect]
     Active Substance: MELPHALAN
     Indication: COMBINED IMMUNODEFICIENCY
     Dosage: UNK
     Route: 065
  3. METHYLPREDNISOLONE. [Concomitant]
     Active Substance: METHYLPREDNISOLONE
     Indication: GRAFT VERSUS HOST DISEASE
     Dosage: 10 MG/KG, 1X/DAY (BW)
     Route: 065
     Dates: start: 2007
  4. TACROLIMUS. [Concomitant]
     Active Substance: TACROLIMUS
     Indication: GRAFT VERSUS HOST DISEASE
     Dosage: UNK
     Route: 065
     Dates: start: 2007
  5. THIOTEPA. [Suspect]
     Active Substance: THIOTEPA
     Indication: COMBINED IMMUNODEFICIENCY
     Dosage: 10 MG/KG, (1X10 MG/KG BW)
     Route: 065
     Dates: start: 2007
  6. AMPHOTERICIN B. [Concomitant]
     Active Substance: AMPHOTERICIN B
     Indication: GRAFT VERSUS HOST DISEASE
     Dosage: UNK
     Route: 065
     Dates: start: 2007
  7. INFLIXIMAB [Concomitant]
     Active Substance: INFLIXIMAB
     Indication: GRAFT VERSUS HOST DISEASE
     Dosage: UNK
     Route: 065
  8. CYCLOSPORINE. [Suspect]
     Active Substance: CYCLOSPORINE
     Indication: PROPHYLAXIS AGAINST GRAFT VERSUS HOST DISEASE
     Dosage: 3 MG/KG BW, TARGET LEVEL 150?200 NG/ML, DAY ? 1 UNTIL DEATH ON DAY + 142
     Route: 065
     Dates: start: 200708
  9. FLUDARABINE PHOSPHATE. [Suspect]
     Active Substance: FLUDARABINE PHOSPHATE
     Indication: COMBINED IMMUNODEFICIENCY
     Dosage: 40 MG/M2, X4
     Route: 065
     Dates: start: 2007
  10. THYMOGLOBULIN [Suspect]
     Active Substance: LAPINE T-LYMPHOCYTE IMMUNE GLOBULIN
     Indication: COMBINED IMMUNODEFICIENCY
     Dosage: 10 MG/KG BW (DIVIDED 1 ? 1 MG/KG BW, 3 X3 MG/KG BW).
     Route: 065
     Dates: start: 2007
  11. MELPHALAN. [Suspect]
     Active Substance: MELPHALAN
     Dosage: 70 MG/M2 ,2X
     Route: 065
  12. METHOTREXATE. [Concomitant]
     Active Substance: METHOTREXATE
     Indication: GRAFT VERSUS HOST DISEASE
     Dosage: 10 MG/M2(DAY+1+3+6)
     Route: 065
     Dates: start: 2007
  13. PREDNISOLONE. [Concomitant]
     Active Substance: PREDNISOLONE
     Indication: GRAFT VERSUS HOST DISEASE
     Dosage: 5 MG/KG BW
     Route: 065
     Dates: start: 2007

REACTIONS (3)
  - Hypertension [Unknown]
  - Pulmonary haemorrhage [Fatal]
  - Cerebral aspergillosis [Fatal]

NARRATIVE: CASE EVENT DATE: 2007
